FAERS Safety Report 4314007-6 (Version None)
Quarter: 2004Q1

REPORT INFORMATION
  Report Type: 
  Country: None (occurrence: None)
  Receive Date: 20040305
  Receipt Date: 20040225
  Transmission Date: 20041129
  Serious: Yes (Hospitalization)
  Sender: FDA-Public Use
  Company Number: 2003034908

PATIENT
  Age: 64 Year
  Sex: Male

DRUGS (2)
  1. TAHOR (ATORVASTATIN) [Suspect]
     Indication: HYPERCHOLESTEROLAEMIA
     Dosage: 40 MG
  2. LEUPRORELIN (LEUPRORELIN) [Suspect]
     Indication: ILL-DEFINED DISORDER
     Dates: start: 19990224, end: 20010301

REACTIONS (4)
  - BLOOD CREATINE PHOSPHOKINASE INCREASED [None]
  - LUMBAR SPINAL STENOSIS [None]
  - MUSCLE CRAMP [None]
  - MYALGIA [None]
